FAERS Safety Report 23616497 (Version 2)
Quarter: 2024Q1

REPORT INFORMATION
  Report Type: Report from Study
  Country: FR (occurrence: FR)
  Receive Date: 20240311
  Receipt Date: 20240314
  Transmission Date: 20240410
  Serious: Yes (Hospitalization)
  Sender: FDA-Public Use
  Company Number: FR-SANOFI-01955580

PATIENT
  Age: 51 Year
  Sex: Female

DRUGS (1)
  1. BELUMOSUDIL MESYLATE [Suspect]
     Active Substance: BELUMOSUDIL MESYLATE
     Indication: Graft versus host disease
     Dosage: 200 MG, BID
     Route: 065
     Dates: start: 20230830

REACTIONS (3)
  - Lung disorder [Unknown]
  - Vomiting [Unknown]
  - Analgesic therapy [Unknown]
